FAERS Safety Report 18179968 (Version 3)
Quarter: 2020Q4

REPORT INFORMATION
  Report Type: Spontaneous
  Country: US (occurrence: US)
  Receive Date: 20200821
  Receipt Date: 20201017
  Transmission Date: 20210113
  Serious: Yes (Other)
  Sender: FDA-Public Use
  Company Number: US-B.I. PHARMACEUTICALS,INC./RIDGEFIELD-2020-BI-043296

PATIENT
  Age: 58 Year
  Sex: Male
  Weight: 95.26 kg

DRUGS (23)
  1. JARDIANCE [Suspect]
     Active Substance: EMPAGLIFLOZIN
     Indication: TYPE 2 DIABETES MELLITUS
     Dosage: 25 MG TABS
     Route: 048
     Dates: start: 20141121, end: 201511
  2. WELLBUTRIN [Concomitant]
     Active Substance: BUPROPION HYDROCHLORIDE
     Indication: RESTLESS LEGS SYNDROME
     Dosage: 150 MG XL TABLET?TAKE 1 TABLET TWICE A DAY
     Route: 048
     Dates: start: 20150205
  3. LEXAPRO [Concomitant]
     Active Substance: ESCITALOPRAM OXALATE
     Indication: RESTLESS LEGS SYNDROME
     Dosage: 20 MG TABS?TAKE 1 TAB BY MOUTH DAILY.
     Route: 048
     Dates: start: 20151002
  4. BACTRIM DS [Concomitant]
     Active Substance: SULFAMETHOXAZOLE\TRIMETHOPRIM
     Indication: PRODUCT USED FOR UNKNOWN INDICATION
     Dosage: DS 800-160 MG TABS ?TAKE 1 TAB BY MOUTH 2 TIMES DAILY FOR 10 DAYS
     Route: 048
     Dates: start: 20151110, end: 20151120
  5. WELLBUTRIN [Concomitant]
     Active Substance: BUPROPION HYDROCHLORIDE
     Indication: DEPRESSION
  6. IMDUR [Concomitant]
     Active Substance: ISOSORBIDE MONONITRATE
     Indication: PRODUCT USED FOR UNKNOWN INDICATION
     Dosage: 30 MG TAB-SR-24HR?TAKE 1 TAB BY MOUTH EVERY MORNING
     Route: 048
     Dates: start: 20150216
  7. NITROLINGUAL [Concomitant]
     Active Substance: NITROGLYCERIN
     Indication: PRODUCT USED FOR UNKNOWN INDICATION
     Dosage: 0.4 MG/SPRAY SOLN?TAKE 1 SPRAY BY MOUTH EVERY 5 MINUTES AS NEEDED
     Route: 048
     Dates: start: 20130723
  8. SEROQUEL [Concomitant]
     Active Substance: QUETIAPINE FUMARATE
     Indication: RESTLESS LEGS SYNDROME
     Dosage: 25 MG TABS?TAKE 1 TAB BY MOUTH NIGHTLY
     Route: 048
     Dates: start: 20141203
  9. ACTOS [Concomitant]
     Active Substance: PIOGLITAZONE HYDROCHLORIDE
     Indication: INSULIN-REQUIRING TYPE 2 DIABETES MELLITUS
     Dosage: 30 MG PO TABS?TAKE 30 MG BY MOUTH DAILY
     Route: 048
  10. LANTUS [Concomitant]
     Active Substance: INSULIN GLARGINE
     Indication: INSULIN-REQUIRING TYPE 2 DIABETES MELLITUS
     Dosage: 100 UNIT/ML SOLN, 70 UNITS BY SUBCUTANEOUS ROUTE EVERY EVENING
     Route: 058
     Dates: start: 20150515
  11. ATENOLOL. [Concomitant]
     Active Substance: ATENOLOL
     Indication: PRODUCT USED FOR UNKNOWN INDICATION
     Dosage: 50 MG PO TABS?TAKE 1 TABLET DAILY
     Route: 048
     Dates: start: 20150427
  12. LIPITOR [Concomitant]
     Active Substance: ATORVASTATIN CALCIUM
     Indication: PRODUCT USED FOR UNKNOWN INDICATION
     Dosage: 40MG TABS, TAKE 1 TAB BY MOUTH EVERY EVENING
     Route: 048
     Dates: start: 20151001
  13. LEXAPRO [Concomitant]
     Active Substance: ESCITALOPRAM OXALATE
     Indication: ANXIETY
  14. SEROQUEL [Concomitant]
     Active Substance: QUETIAPINE FUMARATE
     Indication: ANXIETY
  15. WELLBUTRIN [Concomitant]
     Active Substance: BUPROPION HYDROCHLORIDE
     Indication: ANXIETY
  16. LEXAPRO [Concomitant]
     Active Substance: ESCITALOPRAM OXALATE
     Indication: DEPRESSION
  17. GLUCOPHAGE [Concomitant]
     Active Substance: METFORMIN HYDROCHLORIDE
     Indication: INSULIN-REQUIRING TYPE 2 DIABETES MELLITUS
     Dosage: 1000 MG TABS?TAKE 1 TAB BY MOUTH 2 TIMES DAILY (WITH MEALS)
     Route: 048
     Dates: start: 20151006
  18. LOTREL [Concomitant]
     Active Substance: AMLODIPINE BESYLATE\BENAZEPRIL HYDROCHLORIDE
     Indication: HYPERTENSION
     Dosage: 5-20 MG CAPS?TAKE 1 CAP BY MOUTH DAILY
     Route: 048
     Dates: start: 20150217
  19. ASPIRIN [ACETYLSALICYLIC ACID] [Concomitant]
     Active Substance: ASPIRIN
     Indication: PRODUCT USED FOR UNKNOWN INDICATION
     Dosage: ASPIRIN 325 MG PO TABS?TAKE 325 MG BY MOUTH DAILY
     Route: 048
  20. HUMALOG [Concomitant]
     Active Substance: INSULIN LISPRO
     Indication: TYPE 2 DIABETES MELLITUS
     Dosage: 100 UNIT/ML SOLN, BY SUBCUTANEOUS ROUTE NIGHTLY ?{160, NONE. 161-170=2 UNITS. 171-180=4UNITS, INCREA
     Route: 058
  21. NORCO [Concomitant]
     Active Substance: ACETAMINOPHEN\HYDROCODONE BITARTRATE
     Indication: PAIN
     Dosage: 5-325 MG TABS, TAKE 1-2 TABS BY MOUTH EVERY 4 HOURS AS NEEDED FOR PAIN
     Route: 048
     Dates: start: 20151110
  22. LOTREL [Concomitant]
     Active Substance: AMLODIPINE BESYLATE\BENAZEPRIL HYDROCHLORIDE
     Indication: HYPERKALAEMIA
  23. SEROQUEL [Concomitant]
     Active Substance: QUETIAPINE FUMARATE
     Indication: DEPRESSION

REACTIONS (1)
  - Fournier^s gangrene [Recovered/Resolved]

NARRATIVE: CASE EVENT DATE: 20151112
